FAERS Safety Report 9461834 (Version 1)
Quarter: 2013Q3

REPORT INFORMATION
  Report Type: Spontaneous
  Country: US (occurrence: US)
  Receive Date: 20130816
  Receipt Date: 20130816
  Transmission Date: 20140515
  Serious: No
  Sender: FDA-Public Use
  Company Number: US-009507513-1308USA007021

PATIENT
  Age: 78 Year
  Sex: Male

DRUGS (3)
  1. COZAAR [Suspect]
     Indication: HYPERTENSION
     Dosage: 100 MG, QD
     Route: 048
     Dates: start: 20130810
  2. BYSTOLIC [Concomitant]
     Dosage: UNK
  3. MAXZIDE [Concomitant]
     Dosage: UNK

REACTIONS (1)
  - Thirst [Not Recovered/Not Resolved]
